FAERS Safety Report 5304101-5 (Version None)
Quarter: 2007Q2

REPORT INFORMATION
  Report Type: 
  Country: None (occurrence: None)
  Receive Date: 20070422
  Receipt Date: 20070410
  Transmission Date: 20071010
  Serious: Yes (Hospitalization)
  Sender: FDA-Public Use
  Company Number: CA-ELI_LILLY_AND_COMPANY-CA200704003180

PATIENT
  Age: 82 Year
  Sex: Female

DRUGS (11)
  1. FORTEO [Suspect]
     Indication: OSTEOPOROSIS
     Dosage: 20 UG, DAILY (1/D)
     Route: 058
     Dates: start: 20061114, end: 20070328
  2. TIAZAC [Concomitant]
  3. WARFARIN /00014802/ [Concomitant]
  4. LIPITOR [Concomitant]
  5. NOVO-ATENOL [Concomitant]
  6. NOVO-SEMIDE [Concomitant]
  7. DETROL /01350201/ [Concomitant]
  8. PERINDOPRIL ERBUMINE [Concomitant]
  9. CALCIUM [Concomitant]
  10. VITAMIN D [Concomitant]
  11. ASCORBIC ACID [Concomitant]

REACTIONS (2)
  - ATRIAL FIBRILLATION [None]
  - NAUSEA [None]
